FAERS Safety Report 13349523 (Version 1)
Quarter: 2017Q1

REPORT INFORMATION
  Report Type: Spontaneous
  Country: US (occurrence: US)
  Receive Date: 20170320
  Receipt Date: 20170320
  Transmission Date: 20170428
  Serious: No
  Sender: FDA-Public Use
  Company Number: US-DEPOMED, INC.-US-2016DEP008229

PATIENT

DRUGS (2)
  1. GRALISE [Suspect]
     Active Substance: GABAPENTIN
     Indication: FIBROMYALGIA
     Dosage: STARTER PACK; TITRATED UP TO 600MG ONCE DAILY
     Route: 048
     Dates: start: 20160201
  2. GRALISE [Suspect]
     Active Substance: GABAPENTIN
     Indication: TORTICOLLIS
     Dosage: STARTER PACK; TITRATED UP TO 600MG ONCE DAILY
     Route: 048
     Dates: start: 20160201

REACTIONS (1)
  - Off label use [Not Recovered/Not Resolved]

NARRATIVE: CASE EVENT DATE: 20160201
